FAERS Safety Report 24784199 (Version 1)
Quarter: 2024Q4

REPORT INFORMATION
  Report Type: Spontaneous
  Country: US (occurrence: US)
  Receive Date: 20241227
  Receipt Date: 20241227
  Transmission Date: 20250114
  Serious: No
  Sender: SANOFI AVENTIS
  Company Number: US-SA-2024SA378393

PATIENT
  Age: 89 Year
  Sex: Female

DRUGS (4)
  1. DUPIXENT [Suspect]
     Active Substance: DUPILUMAB
     Indication: Dermatitis atopic
     Dosage: 300 MG, QOW
     Route: 058
     Dates: start: 202412
  2. GENTAMICIN [Concomitant]
     Active Substance: GENTAMICIN
  3. PREDNISOLONE [Concomitant]
     Active Substance: PREDNISOLONE
  4. Triamcinolon [Concomitant]

REACTIONS (13)
  - Asthenia [Recovered/Resolved]
  - Malaise [Recovered/Resolved]
  - Neck pain [Not Recovered/Not Resolved]
  - Skin ulcer [Recovering/Resolving]
  - Skin ulcer haemorrhage [Recovering/Resolving]
  - Dermatitis [Not Recovered/Not Resolved]
  - Dry skin [Not Recovered/Not Resolved]
  - Sleep disorder due to a general medical condition [Not Recovered/Not Resolved]
  - Pruritus [Recovering/Resolving]
  - Headache [Not Recovered/Not Resolved]
  - Skin exfoliation [Not Recovered/Not Resolved]
  - Injection site pain [Not Recovered/Not Resolved]
  - Rash [Not Recovered/Not Resolved]

NARRATIVE: CASE EVENT DATE: 20241201
